FAERS Safety Report 4601982-5 (Version None)
Quarter: 2005Q1

REPORT INFORMATION
  Report Type: 
  Country: None (occurrence: None)
  Receive Date: 20050131
  Receipt Date: 20041117
  Transmission Date: 20050727
  Serious: Yes (Other)
  Sender: FDA-Public Use
  Company Number: 140733USA

PATIENT

DRUGS (1)
  1. OXYCODONE HCL [Suspect]

REACTIONS (2)
  - CONVULSION [None]
  - PROTHROMBIN LEVEL ABNORMAL [None]
